FAERS Safety Report 6415029-1 (Version None)
Quarter: 2009Q4

REPORT INFORMATION
  Report Type: 
  Country: None (occurrence: None)
  Receive Date: 20091026
  Receipt Date: 20091002
  Transmission Date: 20100525
  Serious: No
  Sender: FDA-Public Use
  Company Number: US-ABBOTT-09P-163-0596383-00

PATIENT
  Sex: Female
  Weight: 54.48 kg

DRUGS (6)
  1. LUPRON DEPOT [Suspect]
     Indication: ENDOMETRIOSIS
     Route: 050
     Dates: start: 20090820
  2. CHANTIX [Concomitant]
     Indication: SMOKING CESSATION THERAPY
  3. SYNTHROID [Concomitant]
     Indication: DRUG USE FOR UNKNOWN INDICATION
  4. NORETHINDRONE [Concomitant]
     Indication: PROPHYLAXIS
     Route: 048
  5. NORETHINDRONE [Concomitant]
     Indication: ADVERSE DRUG REACTION
  6. LAXATIVES [Concomitant]
     Indication: CONSTIPATION
     Dates: start: 20090101

REACTIONS (6)
  - ABDOMINAL DISTENSION [None]
  - ADNEXA UTERI PAIN [None]
  - ANORECTAL DISCOMFORT [None]
  - DYSPAREUNIA [None]
  - OVARIAN CYST [None]
  - PROCTALGIA [None]
